FAERS Safety Report 7283015-8 (Version None)
Quarter: 2011Q1

REPORT INFORMATION
  Report Type: 
  Country: None (occurrence: None)
  Receive Date: 20110209
  Receipt Date: 20110127
  Transmission Date: 20110831
  Serious: Yes (Life-Threatening, Other)
  Sender: FDA-Public Use
  Company Number: JP-CELGENEUS-087-21880-10112252

PATIENT
  Sex: Female
  Weight: 58.7 kg

DRUGS (18)
  1. GASTER D [Concomitant]
     Indication: PROPHYLAXIS
     Route: 048
     Dates: start: 20100210
  2. DALACIN [Concomitant]
     Indication: PROPHYLAXIS
     Route: 048
     Dates: start: 20101002, end: 20101010
  3. ASPIRIN [Concomitant]
     Indication: PROPHYLAXIS
     Route: 048
     Dates: start: 20100904, end: 20100908
  4. MUCOSTA [Concomitant]
     Indication: PROPHYLAXIS
     Route: 048
     Dates: start: 20100210
  5. NORVASC [Concomitant]
     Indication: HYPERTENSION
     Route: 048
     Dates: start: 20100210
  6. PANTETHINE [Concomitant]
     Indication: PROPHYLAXIS
     Route: 048
     Dates: start: 20100210
  7. DALACIN [Concomitant]
     Indication: MEDIASTINAL ABSCESS
  8. REVLIMID [Suspect]
     Indication: MULTIPLE MYELOMA
     Route: 048
     Dates: start: 20100904, end: 20100908
  9. REVLIMID [Suspect]
     Route: 048
     Dates: start: 20101005, end: 20101010
  10. REVLIMID [Suspect]
     Route: 048
     Dates: start: 20101019, end: 20101025
  11. FLOMOX [Concomitant]
     Indication: PAIN
     Route: 065
     Dates: start: 20100906
  12. MAGLAX [Concomitant]
     Indication: PROPHYLAXIS
     Route: 048
     Dates: start: 20100210
  13. SAWACILLIN [Concomitant]
     Indication: PROPHYLAXIS
     Route: 048
     Dates: start: 20101002, end: 20101010
  14. SAWACILLIN [Concomitant]
     Indication: MEDIASTINAL ABSCESS
  15. REVLIMID [Suspect]
     Route: 048
     Dates: start: 20101026, end: 20101108
  16. LENADEX [Suspect]
     Indication: MULTIPLE MYELOMA
     Route: 048
     Dates: start: 20100904, end: 20100908
  17. BAKTAR [Concomitant]
     Indication: PROPHYLAXIS
     Route: 048
     Dates: start: 20100210
  18. MORPHES [Concomitant]
     Indication: MULTIPLE MYELOMA
     Route: 048
     Dates: start: 20100927

REACTIONS (2)
  - DRUG ERUPTION [None]
  - MEDIASTINAL ABSCESS [None]
